FAERS Safety Report 16160759 (Version 1)
Quarter: 2019Q2

REPORT INFORMATION
  Report Type: Spontaneous
  Country: US (occurrence: US)
  Receive Date: 20190405
  Receipt Date: 20190405
  Transmission Date: 20190711
  Serious: Yes (Death, Other)
  Sender: FDA-Public Use
  Company Number: US-SA-2019SA093689

PATIENT
  Age: 65 Year
  Sex: Male

DRUGS (1)
  1. ENOXAPARIN SODIUM. [Suspect]
     Active Substance: ENOXAPARIN SODIUM
     Indication: EMBOLISM

REACTIONS (5)
  - Cardiopulmonary failure [Fatal]
  - Haemodynamic instability [Unknown]
  - Cardiac tamponade [Unknown]
  - Haemoglobin decreased [Unknown]
  - Dyspnoea [Unknown]
